FAERS Safety Report 6372162-0 (Version None)
Quarter: 2009Q3

REPORT INFORMATION
  Report Type: 
  Country: None (occurrence: None)
  Receive Date: 20090917
  Receipt Date: 20090904
  Transmission Date: 20100115
  Serious: Yes (Disabling)
  Sender: FDA-Public Use
  Company Number: ADR15812009

PATIENT
  Age: 56 Year
  Sex: 0

DRUGS (2)
  1. CITALOPRAM        (MFR: UNKNOWN) [Suspect]
     Indication: DEPRESSION
     Dosage: 40 MG, ORAL
     Dates: start: 20081208, end: 20081224
  2. LITHIUM 400 MG [Concomitant]

REACTIONS (4)
  - DRUG INTERACTION [None]
  - NERVOUS SYSTEM DISORDER [None]
  - SLUGGISHNESS [None]
  - TREMOR [None]
